FAERS Safety Report 5528678-X (Version None)
Quarter: 2007Q4

REPORT INFORMATION
  Report Type: 
  Country: None (occurrence: None)
  Receive Date: 20071129
  Receipt Date: 20071128
  Transmission Date: 20080405
  Serious: Yes (Death, Other)
  Sender: FDA-Public Use
  Company Number: PL-BRISTOL-MYERS SQUIBB COMPANY-13991179

PATIENT
  Age: 67 Year
  Sex: Male

DRUGS (7)
  1. CYCLOPHOSPHAMIDE [Suspect]
     Indication: NATURAL KILLER-CELL LYMPHOBLASTIC LYMPHOMA
  2. VINCRISTINE SULFATE [Suspect]
     Indication: NATURAL KILLER-CELL LYMPHOBLASTIC LYMPHOMA
  3. ETOPOSIDE [Suspect]
     Indication: NATURAL KILLER-CELL LYMPHOBLASTIC LYMPHOMA
  4. PREDNISONE TAB [Suspect]
     Indication: NATURAL KILLER-CELL LYMPHOBLASTIC LYMPHOMA
  5. CLADRIBINE [Suspect]
     Indication: NATURAL KILLER-CELL LYMPHOBLASTIC LYMPHOMA
  6. MITOXANTRONE [Suspect]
     Indication: NATURAL KILLER-CELL LYMPHOBLASTIC LYMPHOMA
  7. CYTARABINE [Suspect]
     Indication: NATURAL KILLER-CELL LYMPHOBLASTIC LYMPHOMA

REACTIONS (7)
  - AGRANULOCYTOSIS [None]
  - CEREBRAL HAEMORRHAGE [None]
  - DRUG INEFFECTIVE [None]
  - FEBRILE NEUTROPENIA [None]
  - MALIGNANT NEOPLASM PROGRESSION [None]
  - SEPSIS [None]
  - THROMBOCYTOPENIA [None]
